FAERS Safety Report 5825231-5 (Version None)
Quarter: 2008Q3

REPORT INFORMATION
  Report Type: 
  Country: None (occurrence: None)
  Receive Date: 20080722
  Receipt Date: 20080708
  Transmission Date: 20090109
  Serious: Yes (Other)
  Sender: FDA-Public Use
  Company Number: 2008BI014405

PATIENT
  Age: 61 Year
  Sex: Female

DRUGS (11)
  1. TYSABRI [Suspect]
     Indication: MULTIPLE SCLEROSIS
     Dosage: 300 MG;QM;IV
     Route: 042
     Dates: start: 20080207, end: 20080501
  2. AVONEX [Concomitant]
  3. EFFEXOR [Concomitant]
  4. CRESTOR [Concomitant]
  5. PROTONIX [Concomitant]
  6. METOPROLOL [Concomitant]
  7. METFORMIN HCL [Concomitant]
  8. SYNTHROID [Concomitant]
  9. LOTREL [Concomitant]
  10. AVELOX [Concomitant]
  11. TRICOR [Concomitant]

REACTIONS (2)
  - HAEMOLYTIC ANAEMIA [None]
  - NORMOCHROMIC NORMOCYTIC ANAEMIA [None]
